FAERS Safety Report 8334279-0 (Version None)
Quarter: 2012Q1

REPORT INFORMATION
  Report Type: 
  Country: None (occurrence: None)
  Receive Date: 20120329
  Receipt Date: 20100527
  Transmission Date: 20120608
  Serious: Yes (Other)
  Sender: FDA-Public Use
  Company Number: PHHY2010US29914

PATIENT
  Age: 78 Year
  Sex: Male

DRUGS (7)
  1. RISPERDAL [Concomitant]
  2. NAMENDA [Suspect]
     Indication: DEMENTIA ALZHEIMER'S TYPE
     Dosage: 10 MG, BID
     Dates: start: 20090101
  3. EXELON [Suspect]
     Indication: DEMENTIA ALZHEIMER'S TYPE
     Dosage: 9.5 MG, QD, TRANSDERMAL
     Route: 062
     Dates: start: 20091016
  4. GABAPENTIN [Suspect]
  5. VITAMIN E [Concomitant]
  6. ASPIRIN [Concomitant]
  7. MULTIVITAMINS (ASCORBIC ACID, ERGOCALCIFEROL, FOLIC ACID, NICOTINAMIDE [Concomitant]

REACTIONS (4)
  - GAIT DISTURBANCE [None]
  - AMNESIA [None]
  - CONVULSION [None]
  - BALANCE DISORDER [None]
